FAERS Safety Report 19983255 (Version 1)
Quarter: 2021Q4

REPORT INFORMATION
  Report Type: Report from Study
  Country: BR (occurrence: BR)
  Receive Date: 20211022
  Receipt Date: 20211022
  Transmission Date: 20220303
  Serious: Yes (Congenital Anomaly)
  Sender: FDA-Public Use
  Company Number: BR-JNJFOC-20211029761

PATIENT

DRUGS (1)
  1. REMICADE [Suspect]
     Active Substance: INFLIXIMAB
     Indication: Rheumatoid arthritis
     Route: 064

REACTIONS (2)
  - Hypoplastic left heart syndrome [Not Recovered/Not Resolved]
  - Foetal exposure during pregnancy [Unknown]
